FAERS Safety Report 8942528 (Version 1)
Quarter: 2012Q4

REPORT INFORMATION
  Report Type: Spontaneous
  Country: DE (occurrence: None)
  Receive Date: 20121123
  Receipt Date: 20121123
  Transmission Date: 20130627
  Serious: Yes (Other)
  Sender: FDA-Public Use
  Company Number: DE-010150

PATIENT
  Sex: Male
  Weight: 2.8 kg

DRUGS (1)
  1. MINIRIN [Suspect]
     Indication: DIABETES INSIPIDUS
     Dosage: (20  ug  Transplacental)
     Route: 064
     Dates: start: 20111110, end: 20120824

REACTIONS (4)
  - Maternal drugs affecting foetus [None]
  - Foetal growth restriction [None]
  - Ventouse extraction [None]
  - Low birth weight baby [None]
